FAERS Safety Report 16215334 (Version 1)
Quarter: 2019Q2

REPORT INFORMATION
  Report Type: Spontaneous
  Country: BE (occurrence: BE)
  Receive Date: 20190419
  Receipt Date: 20190419
  Transmission Date: 20190711
  Serious: Yes (Hospitalization)
  Sender: FDA-Public Use
  Company Number: BE-TEVA-2019-BE-1038155

PATIENT
  Age: 50 Year
  Sex: Female
  Weight: 71 kg

DRUGS (4)
  1. TEGRETOL CR 200MG [Suspect]
     Active Substance: CARBAMAZEPINE
     Indication: MIGRAINE
     Dosage: 400 MILLIGRAM DAILY;
     Route: 048
     Dates: start: 20181017, end: 20190205
  2. TOPAMAX [Concomitant]
     Active Substance: TOPIRAMATE
     Indication: MIGRAINE
     Dosage: 100 MILLIGRAM DAILY;
     Route: 048
  3. MELOXICAM 7.5 MG [Suspect]
     Active Substance: MELOXICAM
     Indication: MIGRAINE
     Dosage: 7.5 MILLIGRAM DAILY;
     Route: 048
     Dates: start: 20190123
  4. SINECOD [Suspect]
     Active Substance: BUTAMIRATE CITRATE
     Indication: COUGH
     Dosage: 20 ML DAILY;
     Route: 048
     Dates: start: 20190123

REACTIONS (7)
  - Eosinophilia [Recovering/Resolving]
  - Rash pruritic [Recovering/Resolving]
  - Headache [Recovering/Resolving]
  - Liver function test increased [Recovering/Resolving]
  - Rash generalised [Recovering/Resolving]
  - Anaemia [Recovering/Resolving]
  - Rash papular [Recovering/Resolving]

NARRATIVE: CASE EVENT DATE: 20190130
